FAERS Safety Report 12997299 (Version 1)
Quarter: 2016Q4

REPORT INFORMATION
  Report Type: Spontaneous
  Country: US (occurrence: US)
  Receive Date: 20161205
  Receipt Date: 20161205
  Transmission Date: 20170207
  Serious: Yes (Other)
  Sender: FDA-Public Use
  Company Number: US-LUPIN PHARMACEUTICALS INC.-2016-05354

PATIENT
  Sex: Female

DRUGS (1)
  1. AMLODIPINE BESYLATE AND BENAZEPRIL HYDROCHLORIDE [Suspect]
     Active Substance: AMLODIPINE BESYLATE\BENAZEPRIL HYDROCHLORIDE
     Indication: HYPERTENSION
     Dosage: FOR 9 YEARS
     Route: 048

REACTIONS (5)
  - Dyspnoea [Unknown]
  - Lethargy [Unknown]
  - Unresponsive to stimuli [Unknown]
  - Nausea [Unknown]
  - Vomiting [Unknown]

NARRATIVE: CASE EVENT DATE: 20161118
